FAERS Safety Report 11292065 (Version 1)
Quarter: 2015Q3

REPORT INFORMATION
  Report Type: Spontaneous
  Country: US (occurrence: None)
  Receive Date: 20150721
  Receipt Date: 20150721
  Transmission Date: 20151125
  Serious: Yes (Hospitalization)
  Sender: FDA-Public Use
  Company Number: None

PATIENT
  Age: 35 Year
  Sex: Female

DRUGS (1)
  1. CONTRAVE [Suspect]
     Active Substance: BUPROPION HYDROCHLORIDE\NALTREXONE HYDROCHLORIDE
     Indication: WEIGHT DECREASED
     Dosage: 4 PILLS
     Route: 048
     Dates: start: 20150623, end: 20150713

REACTIONS (3)
  - Lip swelling [None]
  - Throat irritation [None]
  - Urticaria [None]

NARRATIVE: CASE EVENT DATE: 20150713
